FAERS Safety Report 25876301 (Version 5)
Quarter: 2025Q4

REPORT INFORMATION
  Report Type: Report from Study
  Country: US (occurrence: None)
  Receive Date: 20251003
  Receipt Date: 20251229
  Transmission Date: 20260118
  Serious: Yes (Other)
  Sender: CHIESI
  Company Number: US-CHIESI-2025CHF05805

PATIENT
  Sex: Female

DRUGS (3)
  1. OCTREOTIDE [Suspect]
     Active Substance: OCTREOTIDE
     Indication: Pancreatic carcinoma
     Dosage: 1 DOSAGE FORM, BID
     Route: 061
     Dates: start: 20250817
  2. OCTREOTIDE [Suspect]
     Active Substance: OCTREOTIDE
     Indication: Diarrhoea
  3. OCTREOTIDE [Suspect]
     Active Substance: OCTREOTIDE
     Indication: Off label use

REACTIONS (6)
  - Cataract [Recovering/Resolving]
  - Cerebral disorder [Not Recovered/Not Resolved]
  - Gastrointestinal disorder [Not Recovered/Not Resolved]
  - Blood glucose decreased [Not Recovered/Not Resolved]
  - Off label use [Not Recovered/Not Resolved]
  - Product label issue [Not Recovered/Not Resolved]

NARRATIVE: CASE EVENT DATE: 20250101
